FAERS Safety Report 6042382-3 (Version None)
Quarter: 2009Q1

REPORT INFORMATION
  Report Type: 
  Country: None (occurrence: None)
  Receive Date: 20090116
  Receipt Date: 20090112
  Transmission Date: 20090719
  Serious: Yes (Hospitalization)
  Sender: FDA-Public Use
  Company Number: US-GENENTECH-275430

PATIENT
  Age: 60 Year
  Sex: Female
  Weight: 109.1 kg

DRUGS (15)
  1. BEVACIZUMAB [Suspect]
     Indication: GASTRIC CANCER
     Dosage: 7.5 MG/KG, UNK
     Dates: start: 20080903
  2. OXALIPLATIN [Suspect]
     Indication: GASTRIC CANCER
     Dosage: 75 MG/M2, UNK
     Dates: start: 20080903
  3. DOCETAXEL [Suspect]
     Indication: GASTRIC CANCER
     Dosage: 55 MG/M2, UNK
     Dates: start: 20080903
  4. TYLENOL (CAPLET) [Concomitant]
     Indication: DRUG USE FOR UNKNOWN INDICATION
  5. BONIVA [Concomitant]
     Indication: DRUG USE FOR UNKNOWN INDICATION
  6. COMPAZINE [Concomitant]
     Indication: DRUG USE FOR UNKNOWN INDICATION
  7. CRESTOR [Concomitant]
     Indication: DRUG USE FOR UNKNOWN INDICATION
  8. METOPROLOL [Concomitant]
     Indication: DRUG USE FOR UNKNOWN INDICATION
  9. MIRALAX [Concomitant]
     Indication: DRUG USE FOR UNKNOWN INDICATION
  10. OMEPRAZOLE [Concomitant]
     Indication: DRUG USE FOR UNKNOWN INDICATION
  11. RELPAX [Concomitant]
     Indication: DRUG USE FOR UNKNOWN INDICATION
  12. ROXANOL [Concomitant]
     Indication: DRUG USE FOR UNKNOWN INDICATION
  13. SENNA [Concomitant]
     Indication: DRUG USE FOR UNKNOWN INDICATION
  14. MORPHINE [Concomitant]
     Indication: DRUG USE FOR UNKNOWN INDICATION
  15. SIMETHICONE [Concomitant]
     Indication: DRUG USE FOR UNKNOWN INDICATION

REACTIONS (1)
  - PERITONITIS BACTERIAL [None]
